FAERS Safety Report 7694312-6 (Version None)
Quarter: 2011Q3

REPORT INFORMATION
  Report Type: 
  Country: None (occurrence: None)
  Receive Date: 20110819
  Receipt Date: 20110803
  Transmission Date: 20111222
  Serious: Yes (Other)
  Sender: FDA-Public Use
  Company Number: JP-GENENTECH-322452

PATIENT
  Sex: Female
  Weight: 51 kg

DRUGS (10)
  1. ZETIA [Concomitant]
     Indication: PRODUCT USED FOR UNKNOWN INDICATION
     Dosage: UNK
     Dates: start: 20100901
  2. LUCENTIS [Suspect]
     Dosage: 0.05 ML, UNKNOWN
     Route: 031
     Dates: start: 20091110
  3. LUCENTIS [Suspect]
     Dosage: 0.05 ML, UNKNOWN
     Route: 031
     Dates: start: 20110301
  4. LEVOFLOXACIN [Concomitant]
     Indication: PRODUCT USED FOR UNKNOWN INDICATION
     Dosage: UNK
     Dates: start: 20090801, end: 20091101
  5. PITAVASTATIN CALCIUM [Concomitant]
     Indication: PRODUCT USED FOR UNKNOWN INDICATION
     Dosage: UNK
     Dates: start: 20100901
  6. LUCENTIS [Suspect]
     Dosage: 0.05 ML, UNKNOWN
     Route: 031
     Dates: start: 20110401
  7. LUCENTIS [Suspect]
     Dosage: 0.05 ML, UNKNOWN
     Route: 031
     Dates: start: 20110501
  8. FOSAMAX [Concomitant]
     Indication: PRODUCT USED FOR UNKNOWN INDICATION
     Dosage: UNK
     Dates: start: 20100901
  9. LUCENTIS [Suspect]
     Indication: CHOROIDAL NEOVASCULARISATION
     Dosage: 0.05 ML, UNKNOWN
     Route: 031
     Dates: start: 20090807
  10. LUCENTIS [Suspect]
     Dosage: 0.05 ML, UNKNOWN
     Route: 031
     Dates: start: 20091002

REACTIONS (3)
  - RETINAL TEAR [None]
  - HERPES ZOSTER [None]
  - MACULOPATHY [None]
